FAERS Safety Report 4307918-9 (Version None)
Quarter: 2004Q1

REPORT INFORMATION
  Report Type: 
  Country: None (occurrence: None)
  Receive Date: 20040301
  Receipt Date: 20020816
  Transmission Date: 20041129
  Serious: No
  Sender: FDA-Public Use
  Company Number: US-BRISTOL-MYERS SQUIBB COMPANY-12001764

PATIENT
  Age: 58 Year
  Sex: Male
  Weight: 84 kg

DRUGS (1)
  1. GLUCOPHAGE [Suspect]
     Indication: DIABETES MELLITUS

REACTIONS (4)
  - BLOOD GLUCOSE DECREASED [None]
  - HYPERHIDROSIS [None]
  - LOOSE STOOLS [None]
  - TREMOR [None]
